FAERS Safety Report 7677747-7 (Version None)
Quarter: 2011Q3

REPORT INFORMATION
  Report Type: 
  Country: None (occurrence: None)
  Receive Date: 20110811
  Receipt Date: 20110809
  Transmission Date: 20111222
  Serious: Yes (Other)
  Sender: FDA-Public Use
  Company Number: FR-PFIZER INC-2011174097

PATIENT
  Age: 68 Year
  Sex: Male
  Weight: 73 kg

DRUGS (3)
  1. SIROLIMUS [Suspect]
     Indication: PROPHYLAXIS AGAINST TRANSPLANT REJECTION
     Dosage: 2 MG, 1X/DAY
     Route: 048
     Dates: start: 20080128
  2. SIROLIMUS [Suspect]
     Dosage: 1 MG, 1X/DAY
     Dates: start: 20081223
  3. PLAVIX [Concomitant]

REACTIONS (1)
  - OESOPHAGEAL CARCINOMA [None]
